FAERS Safety Report 18047781 (Version 1)
Quarter: 2020Q3

REPORT INFORMATION
  Report Type: Spontaneous
  Country: US (occurrence: US)
  Receive Date: 20200720
  Receipt Date: 20200720
  Transmission Date: 20201103
  Serious: No
  Sender: FDA-Public Use
  Company Number: None

PATIENT
  Age: 57 Year
  Sex: Male
  Weight: 92.5 kg

DRUGS (7)
  1. REMDESIVIR. [Suspect]
     Active Substance: REMDESIVIR
     Indication: COVID-19
     Route: 042
     Dates: start: 20200717, end: 20200718
  2. VERSED [Concomitant]
     Active Substance: MIDAZOLAM HYDROCHLORIDE
     Dates: start: 20200716
  3. DIPRIVAN [Concomitant]
     Active Substance: PROPOFOL
     Dates: start: 20200716
  4. HEPARIN [Concomitant]
     Active Substance: HEPARIN SODIUM
     Dates: start: 20200718
  5. ZEMURON [Concomitant]
     Active Substance: ROCURONIUM BROMIDE
     Dates: start: 20200716
  6. SODIUM CHLORIDE 0.45% [Concomitant]
     Active Substance: SODIUM CHLORIDE
     Dates: start: 20200719
  7. SUBLIMAZE [Concomitant]
     Active Substance: FENTANYL CITRATE
     Dates: start: 20200717

REACTIONS (1)
  - Acute kidney injury [None]

NARRATIVE: CASE EVENT DATE: 20200718
